FAERS Safety Report 7981413-8 (Version None)
Quarter: 2011Q4

REPORT INFORMATION
  Report Type: 
  Country: None (occurrence: None)
  Receive Date: 20111213
  Receipt Date: 20111205
  Transmission Date: 20120403
  Serious: Yes (Death, Hospitalization, Other)
  Sender: FDA-Public Use
  Company Number: 2010JP006132

PATIENT
  Age: 6 Year
  Sex: Male

DRUGS (6)
  1. PREDNISOLONE [Concomitant]
  2. METHOTREXATE [Concomitant]
  3. ZETBULIN (ANTILYMPHOCYTE IMMUNOGLOBULIN (HORSE)) [Concomitant]
  4. PROGRAF [Suspect]
     Indication: PROPHYLAXIS AGAINST GRAFT VERSUS HOST DISEASE
     Dosage: ORAL
     Route: 048
  5. PROGRAF [Suspect]
     Indication: PROPHYLAXIS AGAINST GRAFT VERSUS HOST DISEASE
     Dosage: 0.03 MG/KG, UNKNOWN/D
     Dates: start: 20060531
  6. FLUDARABINE PHOSPHATE [Concomitant]

REACTIONS (4)
  - DRUG INEFFECTIVE [None]
  - ACUTE GRAFT VERSUS HOST DISEASE [None]
  - SEPSIS [None]
  - CHRONIC GRAFT VERSUS HOST DISEASE [None]
